FAERS Safety Report 4763899-5 (Version None)
Quarter: 2005Q3

REPORT INFORMATION
  Report Type: 
  Country: None (occurrence: None)
  Receive Date: 20050906
  Receipt Date: 20050511
  Transmission Date: 20060218
  Serious: No
  Sender: FDA-Public Use
  Company Number: 2005-BP-07809BP

PATIENT
  Age: 77 Year
  Sex: Male
  Weight: 55.3388 kg

DRUGS (3)
  1. SPIRIVA [Suspect]
     Indication: CHRONIC OBSTRUCTIVE PULMONARY DISEASE
     Dosage: 18 MCG *18 MCG QD)IH
     Route: 055
     Dates: start: 20040601
  2. OXYGEN (OXYGEN) [Concomitant]
  3. SPIRIVA [Suspect]

REACTIONS (1)
  - AGEUSIA [None]
